FAERS Safety Report 8169367-5 (Version None)
Quarter: 2012Q1

REPORT INFORMATION
  Report Type: 
  Country: None (occurrence: None)
  Receive Date: 20120222
  Receipt Date: 20120209
  Transmission Date: 20120608
  Serious: Yes (Other)
  Sender: FDA-Public Use
  Company Number: AUR-APL-2012-00997

PATIENT
  Age: 55 Year
  Sex: Female
  Weight: 91 kg

DRUGS (9)
  1. LISINOPRIL [Suspect]
     Indication: BLOOD PRESSURE ABNORMAL
     Dosage: 20 MG, 1 D
  2. CETIRIZINE [Concomitant]
  3. FLUTICASONE (FLUTICASONE PROPIONATE) [Concomitant]
  4. NAPROXEN [Concomitant]
  5. CHANTIX [Suspect]
  6. PRAVASTATIN [Concomitant]
  7. LISINOPRIL [Suspect]
     Indication: BLOOD PRESSURE ABNORMAL
     Dosage: 10 MG, 1 D, ORAL
     Route: 048
     Dates: start: 20120128
  8. CHANTIX [Suspect]
     Indication: SMOKING CESSATION THERAPY
     Dosage: 0.5; 2 ( 1 MG, 2 IN 1 D) MG, 1 D, ORAL
     Route: 048
     Dates: start: 20120101, end: 20120206
  9. CHANTIX [Suspect]
     Indication: SMOKING CESSATION THERAPY
     Dosage: 0.5; 2 ( 1 MG, 2 IN 1 D) MG, 1 D, ORAL
     Route: 048
     Dates: start: 20120128

REACTIONS (8)
  - NAUSEA [None]
  - WRONG TECHNIQUE IN DRUG USAGE PROCESS [None]
  - HAEMORRHOIDAL HAEMORRHAGE [None]
  - VOMITING [None]
  - CONSTIPATION [None]
  - BLOOD PRESSURE DECREASED [None]
  - DIZZINESS [None]
  - ANXIETY [None]
